FAERS Safety Report 20626275 (Version 1)
Quarter: 2022Q1

REPORT INFORMATION
  Report Type: Spontaneous
  Country: US (occurrence: None)
  Receive Date: 20220323
  Receipt Date: 20220323
  Transmission Date: 20220423
  Serious: No
  Sender: FDA-Public Use
  Company Number: US-ROCHE-2843053

PATIENT
  Age: 65 Year
  Sex: Male

DRUGS (1)
  1. ERIVEDGE [Suspect]
     Active Substance: VISMODEGIB
     Indication: Basal cell carcinoma
     Dosage: 150 MG CAPSULES ONE ON MONDAY AND ONE ON THURSDAY
     Route: 048
     Dates: start: 202011

REACTIONS (6)
  - Headache [Recovered/Resolved]
  - Neck pain [Unknown]
  - Tension [Unknown]
  - Myalgia [Unknown]
  - Constipation [Not Recovered/Not Resolved]
  - Pain in extremity [Unknown]

NARRATIVE: CASE EVENT DATE: 20210603
